FAERS Safety Report 6680096-7 (Version None)
Quarter: 2010Q2

REPORT INFORMATION
  Report Type: 
  Country: None (occurrence: None)
  Receive Date: 20100413
  Receipt Date: 20100330
  Transmission Date: 20101027
  Serious: Yes (Other)
  Sender: FDA-Public Use
  Company Number: PHHY2010BR20127

PATIENT
  Age: 46 Year
  Sex: Female

DRUGS (5)
  1. VOLTAREN [Suspect]
     Dosage: 50 MG, UNK
  2. CATAFLAM [Suspect]
     Dosage: 50 MG, UNK
  3. HYDROCHLOROTHIAZIDE [Concomitant]
     Dosage: 25 MG, DAILY
  4. ENALAPRIL MALEATE [Concomitant]
     Dosage: UNK
  5. PIROXICAM [Concomitant]
     Indication: HAEMOSTASIS
     Dosage: UNK

REACTIONS (10)
  - ABDOMINAL PAIN UPPER [None]
  - BLOOD POTASSIUM DECREASED [None]
  - BLOOD PRESSURE INCREASED [None]
  - BURNING SENSATION [None]
  - FEELING ABNORMAL [None]
  - GASTRIC DISORDER [None]
  - MALAISE [None]
  - MUSCLE SPASMS [None]
  - MUSCULAR WEAKNESS [None]
  - SWELLING [None]
